FAERS Safety Report 17894159 (Version 8)
Quarter: 2021Q3

REPORT INFORMATION
  Report Type: Report from Study
  Country: IL (occurrence: IL)
  Receive Date: 20200615
  Receipt Date: 20210924
  Transmission Date: 20211014
  Serious: Yes (Death, Hospitalization)
  Sender: FDA-Public Use
  Company Number: IL-ROCHE-2615531

PATIENT
  Age: 54 Year
  Sex: Female
  Weight: 58 kg

DRUGS (11)
  1. ROKACET [Concomitant]
     Active Substance: ACETAMINOPHEN\CAFFEINE\CODEINE PHOSPHATE
  2. VITAMIN B12 [Concomitant]
     Active Substance: CYANOCOBALAMIN
     Indication: ANAEMIA
  3. ATEZOLIZUMAB. [Suspect]
     Active Substance: ATEZOLIZUMAB
     Indication: METASTATIC NEOPLASM
     Dosage: ON 15/JUN/2020, HAD THE LAST STUDY DRUG ADMIN PRIOR TO ADVERSE EVENT AND SERIOUS ADVERSE EVENT AT 10
     Route: 041
     Dates: start: 20200524
  4. LORIVAN [Concomitant]
     Active Substance: LORAZEPAM
     Indication: ANXIETY
  5. MOTILIUM [Concomitant]
     Active Substance: DOMPERIDONE
  6. ESOMEPRAZOLE. [Concomitant]
     Active Substance: ESOMEPRAZOLE MAGNESIUM
     Dates: start: 20201110
  7. LYRICA [Concomitant]
     Active Substance: PREGABALIN
     Indication: INTERVERTEBRAL DISC DISPLACEMENT
  8. CLONEX [CLONAZEPAM] [Concomitant]
     Active Substance: CLONAZEPAM
     Indication: ANXIETY
     Dates: start: 20200527
  9. OPTALGIN [Concomitant]
     Active Substance: METAMIZOLE
  10. RO6874281 (FAP IL2V MAB) [Suspect]
     Active Substance: SIMLUKAFUSP ALFA
     Indication: METASTATIC NEOPLASM
     Dosage: ON 15/JUN/2020, HAD THE LAST STUDY DRUG ADMIN PRIOR TO ADVERSE EVENT AND SERIOUS ADVERSE EVENT AT 1
     Route: 042
     Dates: start: 20200524
  11. FOLIC ACID. [Concomitant]
     Active Substance: FOLIC ACID
     Indication: ANAEMIA

REACTIONS (2)
  - Anaemia [Recovered/Resolved]
  - Influenza like illness [Recovered/Resolved]

NARRATIVE: CASE EVENT DATE: 20200524
